FAERS Safety Report 6880978-7 (Version None)
Quarter: 2010Q2

REPORT INFORMATION
  Report Type: 
  Country: None (occurrence: None)
  Receive Date: 20100630
  Receipt Date: 20090911
  Transmission Date: 20101027
  Serious: Yes (Other)
  Sender: FDA-Public Use
  Company Number: 2009246941

PATIENT
  Age: 65 Year
  Sex: Male
  Weight: 69 kg

DRUGS (3)
  1. ZITHROMAX [Suspect]
     Indication: ACUTE SINUSITIS
     Dosage: 250 MG, 2X/DAY, ORAL : 250 MG, 1X/DAY, ORAL
     Route: 048
     Dates: start: 20090205, end: 20090205
  2. ZITHROMAX [Suspect]
     Indication: ACUTE SINUSITIS
     Dosage: 250 MG, 2X/DAY, ORAL : 250 MG, 1X/DAY, ORAL
     Route: 048
     Dates: start: 20090206, end: 20090210
  3. DECONAMINE - SLOW RELEASE (PSEUDOEPHEDRIEN HYDROCHLORIDE) [Concomitant]

REACTIONS (4)
  - DIARRHOEA [None]
  - HEPATIC ENZYME INCREASED [None]
  - INSOMNIA [None]
  - WEIGHT DECREASED [None]
